FAERS Safety Report 23904067 (Version 1)
Quarter: 2024Q2

REPORT INFORMATION
  Report Type: Report from Study
  Country: CA (occurrence: CA)
  Receive Date: 20240527
  Receipt Date: 20240527
  Transmission Date: 20240716
  Serious: Yes (Other)
  Sender: FDA-Public Use
  Company Number: CA-TAKEDA-2023TUS072570

PATIENT
  Age: 17 Year
  Sex: Male
  Weight: 77.1 kg

DRUGS (10)
  1. VEDOLIZUMAB [Suspect]
     Active Substance: VEDOLIZUMAB
     Indication: Colitis ulcerative
     Dosage: 300 MILLIGRAM
     Route: 042
     Dates: start: 20230510
  2. VEDOLIZUMAB [Suspect]
     Active Substance: VEDOLIZUMAB
     Dosage: 300 MILLIGRAM
     Route: 042
  3. VEDOLIZUMAB [Suspect]
     Active Substance: VEDOLIZUMAB
     Dosage: 300 MILLIGRAM, Q4WEEKS
     Route: 042
     Dates: start: 20240201
  4. VEDOLIZUMAB [Suspect]
     Active Substance: VEDOLIZUMAB
     Dosage: 300 MILLIGRAM, Q4WEEKS
     Route: 042
  5. REMICADE [Suspect]
     Active Substance: INFLIXIMAB
     Indication: Product used for unknown indication
     Dosage: 800 MILLIGRAM, Q4WEEKS
     Route: 065
     Dates: start: 20221208
  6. PREDNISONE [Concomitant]
     Active Substance: PREDNISONE
     Dosage: 40 MILLIGRAM
     Dates: start: 20230505
  7. CURCUMIN [Concomitant]
     Active Substance: CURCUMIN
     Dosage: 2000 MILLIGRAM, QD
     Route: 048
  8. CHOLECALCIFEROL [Concomitant]
     Active Substance: CHOLECALCIFEROL
     Dosage: UNK
  9. VITAMIN D3 [Concomitant]
     Active Substance: CHOLECALCIFEROL
     Dosage: UNK UNK, QD
     Route: 048
  10. LANSOPRAZOLE [Concomitant]
     Active Substance: LANSOPRAZOLE
     Dosage: 30 MILLIGRAM, QD
     Route: 048

REACTIONS (14)
  - Pneumothorax spontaneous [Unknown]
  - Comminuted fracture [Unknown]
  - Haematochezia [Unknown]
  - Drug level decreased [Unknown]
  - Disturbance in attention [Unknown]
  - Insomnia [Unknown]
  - Dry skin [Unknown]
  - Apathy [Unknown]
  - Off label use [Unknown]
  - Hand fracture [Unknown]
  - Stress [Unknown]
  - Decreased appetite [Unknown]
  - Fatigue [Unknown]
  - Nausea [Unknown]

NARRATIVE: CASE EVENT DATE: 20230510
